FAERS Safety Report 6586558-5 (Version None)
Quarter: 2010Q1

REPORT INFORMATION
  Report Type: 
  Country: None (occurrence: None)
  Receive Date: 20100217
  Receipt Date: 20090428
  Transmission Date: 20100710
  Serious: No
  Sender: FDA-Public Use
  Company Number: US-ALLERGAN-0904040US

PATIENT
  Age: 55 Year
  Sex: Female
  Weight: 68.027 kg

DRUGS (3)
  1. LATISSE [Suspect]
     Indication: GROWTH OF EYELASHES
     Dosage: UNK, QD
     Dates: start: 20090319
  2. BOTOX COSMETIC [Suspect]
     Indication: SKIN WRINKLING
     Dosage: UNK, SINGLE
     Route: 030
     Dates: start: 20090312, end: 20090312
  3. ZOLOFT [Concomitant]
     Dosage: 100 MG, QD

REACTIONS (5)
  - EYE PRURITUS [None]
  - EYE SWELLING [None]
  - EYELID PTOSIS [None]
  - MYDRIASIS [None]
  - OCULAR HYPERAEMIA [None]
